FAERS Safety Report 16763479 (Version 1)
Quarter: 2019Q3

REPORT INFORMATION
  Report Type: Spontaneous
  Country: GB (occurrence: GB)
  Receive Date: 20190902
  Receipt Date: 20190902
  Transmission Date: 20191005
  Serious: Yes (Life-Threatening)
  Sender: FDA-Public Use
  Company Number: GB-TEVA-2019-GB-1100234

PATIENT
  Sex: Male

DRUGS (2)
  1. PAROXETINE. [Concomitant]
     Active Substance: PAROXETINE
     Dosage: 20 MG
     Dates: start: 2004
  2. PANTOPRAZOLE [Suspect]
     Active Substance: PANTOPRAZOLE
     Dosage: 20 MG
     Route: 048
     Dates: start: 20190709, end: 20190716

REACTIONS (8)
  - Hyperhidrosis [Unknown]
  - Diarrhoea [Unknown]
  - Insomnia [Unknown]
  - Suicidal ideation [Unknown]
  - Product dispensing error [Unknown]
  - Mental disorder [Unknown]
  - Confusional state [Unknown]
  - Dizziness [Unknown]
